FAERS Safety Report 19370998 (Version 1)
Quarter: 2021Q2

REPORT INFORMATION
  Report Type: Spontaneous
  Country: IT (occurrence: IT)
  Receive Date: 20210603
  Receipt Date: 20210603
  Transmission Date: 20210717
  Serious: Yes (Other)
  Sender: FDA-Public Use
  Company Number: IT-SAOL THERAPEUTICS-2021SAO00197

PATIENT
  Age: 70 Year
  Sex: Male

DRUGS (22)
  1. NEURONTIN [Suspect]
     Active Substance: GABAPENTIN
     Indication: PAIN
     Dosage: 100 MG, 3X/DAY
     Route: 048
     Dates: start: 20200115
  2. AMLODIPINE [Concomitant]
     Active Substance: AMLODIPINE BESYLATE
     Dosage: 2.5 MG, 1X/DAY
     Route: 048
  3. MACROGOL [Concomitant]
     Active Substance: POLYETHYLENE GLYCOLS
     Indication: FUNCTIONAL GASTROINTESTINAL DISORDER
     Dosage: UNK
     Route: 048
  4. SODIUM CHLORIDE. [Concomitant]
     Active Substance: SODIUM CHLORIDE
     Indication: CLOSTRIDIUM DIFFICILE INFECTION
     Dosage: 500 ML, 2X/DAY
     Route: 042
  5. CARDIOASPIRIN [Concomitant]
     Active Substance: ASPIRIN
     Dosage: 100 MG, 1X/DAY
     Route: 048
  6. SIMETHICONE (DIMETHICONE) [Concomitant]
     Active Substance: DIMETHICONE
     Dosage: 80 MG, 3X/DAY
     Route: 048
  7. BISOPROLOL [Concomitant]
     Active Substance: BISOPROLOL
     Dosage: 25 MG, 1X/DAY
     Route: 048
  8. FONDAPARINUX [Concomitant]
     Active Substance: FONDAPARINUX
     Dosage: 2.5 MG/0.5 ML PER DAY
     Route: 058
  9. ENEMA (SODIUM PHOSPHATE, DIBASIC\SODIUM PHOSPHATE, MONOBASIC) [Concomitant]
     Active Substance: SODIUM PHOSPHATE, DIBASIC\SODIUM PHOSPHATE, MONOBASIC
     Indication: FUNCTIONAL GASTROINTESTINAL DISORDER
     Dosage: UNK
     Route: 065
  10. BACLOFEN. [Suspect]
     Active Substance: BACLOFEN
     Dosage: 25 MG, 3X/DAY
     Route: 048
     Dates: start: 20191221
  11. VANCOMYCIN [Concomitant]
     Active Substance: VANCOMYCIN
     Dosage: 500 MG; ONE?FOURTH OF A VIAL
     Route: 048
  12. CORDARONE [Concomitant]
     Active Substance: AMIODARONE HYDROCHLORIDE
     Dosage: 200 MG, 1X/DAY
     Route: 065
  13. PANTOPRAZOLE [Concomitant]
     Active Substance: PANTOPRAZOLE
     Dosage: 40 MG, 1X/DAY
     Route: 065
  14. SILODOSIN. [Concomitant]
     Active Substance: SILODOSIN
     Dosage: 8 MG, 1X/DAY
     Route: 048
  15. NEURONTIN [Suspect]
     Active Substance: GABAPENTIN
     Dosage: 300 MG, 1X/DAY
     Route: 048
     Dates: start: 20200224
  16. NEURONTIN [Suspect]
     Active Substance: GABAPENTIN
     Dosage: 100 MG, 2X/DAY
     Route: 048
  17. POTASSIUM [Concomitant]
     Active Substance: POTASSIUM
     Dosage: 600 MG, 2X/DAY
     Route: 048
  18. FUROSEMIDE. [Concomitant]
     Active Substance: FUROSEMIDE
     Dosage: 25 MG, 1X/DAY
     Route: 048
  19. NEURONTIN [Suspect]
     Active Substance: GABAPENTIN
     Dosage: 300 MG, 2X/DAY
     Route: 048
     Dates: start: 20200314
  20. IRON SUPPLEMENT [Concomitant]
     Active Substance: IRON
     Dosage: 5 MG/5 ML ONE VIAL PER DAY
     Route: 042
  21. PROBIOTICS [Concomitant]
     Active Substance: PROBIOTICS NOS
     Route: 048
  22. ZOLPIDEM [Concomitant]
     Active Substance: ZOLPIDEM TARTRATE
     Indication: SLEEP DISORDER
     Dosage: 10 MG, AS NEEDED
     Route: 048

REACTIONS (2)
  - Drug interaction [Recovered/Resolved]
  - Coma [Recovered/Resolved]

NARRATIVE: CASE EVENT DATE: 20200622
